FAERS Safety Report 25500712 (Version 10)
Quarter: 2025Q4

REPORT INFORMATION
  Report Type: Spontaneous
  Country: CA (occurrence: CA)
  Receive Date: 20250701
  Receipt Date: 20251110
  Transmission Date: 20260118
  Serious: Yes (Other)
  Sender: PFIZER
  Company Number: CA-PFIZER INC-202500124057

PATIENT
  Age: 42 Year
  Sex: Female
  Weight: 103.3 kg

DRUGS (6)
  1. IXIFI [Suspect]
     Active Substance: INFLIXIMAB-QBTX
     Indication: Crohn^s disease
     Dosage: 5 MG/KG, W 0,2,6 THEN Q5 WEEKS, DOSE TO ROUND UP TO NEAREST HUNDRED (EVERY 5 WEEKS)
     Route: 042
     Dates: start: 20250602
  2. IXIFI [Suspect]
     Active Substance: INFLIXIMAB-QBTX
     Dosage: 5 MG/KG, W 0,2,6 THEN Q5 WEEKS, DOSE TO ROUND UP TO NEAREST HUNDRED
     Route: 042
     Dates: start: 20250616
  3. IXIFI [Suspect]
     Active Substance: INFLIXIMAB-QBTX
     Dosage: 600 MG (5 MG/KG), EVERY 5 WEEKS (W 0,2,6 THEN Q5 WEEKS, DOSE TO ROUND UP TO NEAREST HUNDRED)
     Route: 042
     Dates: start: 20250724
  4. IXIFI [Suspect]
     Active Substance: INFLIXIMAB-QBTX
     Dosage: 600 MG, EVERY 5 WEEKS
     Route: 042
     Dates: start: 20250826
  5. IXIFI [Suspect]
     Active Substance: INFLIXIMAB-QBTX
     Dosage: 600 MG(5 MG/KG), EVERY 5 WEEKS (W0,2,6 THEN Q5 WEEKS, DOSE TO ROUND UP TO NEAREST HUNDRED)
     Route: 042
     Dates: start: 20250929
  6. IXIFI [Suspect]
     Active Substance: INFLIXIMAB-QBTX
     Dosage: 600 MG, EVERY 5 WEEKS (5MG/KG, W0,2,6 THEN Q5 WEEKS, DOSE TO ROUND UP TO NEAREST HUNDRED)
     Route: 042
     Dates: start: 20251104

REACTIONS (6)
  - Hidradenitis [Not Recovered/Not Resolved]
  - Skin infection [Not Recovered/Not Resolved]
  - Localised infection [Recovering/Resolving]
  - Cellulitis [Unknown]
  - Condition aggravated [Recovering/Resolving]
  - Off label use [Unknown]

NARRATIVE: CASE EVENT DATE: 20250101
